FAERS Safety Report 5796512-9 (Version None)
Quarter: 2008Q3

REPORT INFORMATION
  Report Type: 
  Country: None (occurrence: None)
  Receive Date: 20080701
  Receipt Date: 20080623
  Transmission Date: 20090109
  Serious: Yes (Hospitalization, Other)
  Sender: FDA-Public Use
  Company Number: B0524663A

PATIENT
  Age: 6 Year
  Sex: Female

DRUGS (7)
  1. FLUTICASONE PROPIONATE [Suspect]
     Indication: ASTHMA
     Dosage: 200MCG TWICE PER DAY
     Route: 055
     Dates: start: 20061017, end: 20061025
  2. SOLU-MEDROL [Suspect]
     Indication: ASTHMA
     Dosage: 40MG FOUR TIMES PER DAY
     Route: 065
     Dates: start: 20061010, end: 20061019
  3. NEOPHYLLIN [Concomitant]
     Indication: ASTHMA
     Route: 042
     Dates: start: 20061010, end: 20061015
  4. VENETLIN [Concomitant]
     Indication: ASTHMA
     Dosage: .6ML PER DAY
     Route: 055
     Dates: start: 20061009, end: 20061017
  5. INTAL [Concomitant]
     Indication: ASTHMA
     Dosage: 6ML PER DAY
     Route: 055
     Dates: start: 20061009, end: 20061017
  6. ONON [Concomitant]
     Indication: ASTHMA
     Dosage: 2G PER DAY
     Route: 048
     Dates: start: 20061009, end: 20061016
  7. SINGULAIR [Concomitant]
     Indication: ASTHMA
     Dosage: 5MG PER DAY
     Route: 048
     Dates: start: 20061017, end: 20061022

REACTIONS (2)
  - GASTROINTESTINAL HAEMORRHAGE [None]
  - MELAENA [None]
